FAERS Safety Report 4880987-3 (Version None)
Quarter: 2005Q4

REPORT INFORMATION
  Report Type: 
  Country: None (occurrence: None)
  Receive Date: 20051223
  Receipt Date: 20051111
  Transmission Date: 20060501
  Serious: Yes (Hospitalization)
  Sender: FDA-Public Use
  Company Number: 05P-163-0316627-00

PATIENT
  Age: 67 Year
  Sex: Female
  Weight: 76.2043 kg

DRUGS (10)
  1. HUMIRA [Suspect]
     Indication: RHEUMATOID ARTHRITIS
     Dosage: 40 MG, 1 IN 2 WK, SUBCUTANEOUS
     Route: 058
     Dates: start: 20050816, end: 20050927
  2. PREDNISONE [Concomitant]
  3. LEFLUNOMIDE [Concomitant]
  4. METOPROLOL [Concomitant]
  5. TRIAMTERENE AND HYDROCHLOROTHIAZIDE [Concomitant]
  6. ONE A DAY  (VITAMIN SUPPLEMENT) [Concomitant]
  7. CALCIUM GLUCONATE [Concomitant]
  8. FOLIC ACID [Concomitant]
  9. INFLIXIMAB [Concomitant]
  10. FISH OIL [Concomitant]

REACTIONS (7)
  - ARTHRALGIA [None]
  - BLOOD GLUCOSE INCREASED [None]
  - BLOOD PRESSURE INCREASED [None]
  - BURNING SENSATION [None]
  - DRUG INEFFECTIVE [None]
  - HEART RATE INCREASED [None]
  - MOBILITY DECREASED [None]
